FAERS Safety Report 23751951 (Version 2)
Quarter: 2024Q3

REPORT INFORMATION
  Report Type: Report from Study
  Country: UY (occurrence: UY)
  Receive Date: 20240417
  Receipt Date: 20240905
  Transmission Date: 20241017
  Serious: Yes (Hospitalization, Other)
  Sender: ABBVIE
  Company Number: UY-ABBVIE-5719154

PATIENT
  Age: 58 Year
  Sex: Female

DRUGS (2)
  1. RINVOQ [Suspect]
     Active Substance: UPADACITINIB
     Indication: Rheumatoid arthritis
     Dosage: FORM STRENGTH: 15 MILLIGRAMS
     Route: 048
     Dates: start: 20210417
  2. RINVOQ [Suspect]
     Active Substance: UPADACITINIB
     Indication: Rheumatoid arthritis
     Dosage: FORM STRENGTH: 15 MILLIGRAM
     Route: 048

REACTIONS (16)
  - Cerebrovascular accident [Unknown]
  - Sensory loss [Not Recovered/Not Resolved]
  - Blood pressure increased [Unknown]
  - Dizziness [Recovered/Resolved]
  - Bone disorder [Not Recovered/Not Resolved]
  - Oral disorder [Recovered/Resolved]
  - Speech disorder [Recovered/Resolved]
  - Joint dislocation [Not Recovered/Not Resolved]
  - Fatigue [Recovering/Resolving]
  - Cerebral thrombosis [Unknown]
  - Visual impairment [Recovered/Resolved]
  - Hypertension [Recovered/Resolved]
  - Pain in extremity [Recovered/Resolved]
  - Computerised tomogram head abnormal [Unknown]
  - Rheumatoid arthritis [Not Recovered/Not Resolved]
  - Pain [Not Recovered/Not Resolved]

NARRATIVE: CASE EVENT DATE: 20240301
